FAERS Safety Report 5598195-X (Version None)
Quarter: 2008Q1

REPORT INFORMATION
  Report Type: 
  Country: None (occurrence: None)
  Receive Date: 20080122
  Receipt Date: 20080118
  Transmission Date: 20080703
  Serious: Yes (Death)
  Sender: FDA-Public Use
  Company Number: PHBS2007FI17417

PATIENT
  Sex: Female

DRUGS (6)
  1. EXJADE [Suspect]
     Indication: MYELODYSPLASTIC SYNDROME
     Dosage: 1500 MG/D
     Route: 065
     Dates: start: 20060202, end: 20070123
  2. THYROXIN [Concomitant]
     Dosage: 0.1 MG, QD
     Dates: start: 20050301
  3. OXYCONTIN [Concomitant]
     Dosage: 5 MG, BID
     Dates: start: 20070104
  4. ATACAND [Concomitant]
     Dosage: 16 MG, QD
     Dates: start: 20050501, end: 20070123
  5. EMCONCOR [Concomitant]
     Dosage: 5 MG, QD
     Dates: start: 20050501, end: 20070123
  6. RED BLOOD CELLS [Concomitant]

REACTIONS (13)
  - ACUTE LEUKAEMIA [None]
  - ARTERIOSCLEROSIS [None]
  - C-REACTIVE PROTEIN INCREASED [None]
  - CARDIAC FAILURE [None]
  - CORONARY ARTERY DISEASE [None]
  - DYSPNOEA [None]
  - HEPATIC CONGESTION [None]
  - LEFT VENTRICULAR HYPERTROPHY [None]
  - LUNG DISORDER [None]
  - MYELODYSPLASTIC SYNDROME [None]
  - PLATELET COUNT DECREASED [None]
  - PULMONARY OEDEMA [None]
  - PYREXIA [None]
